FAERS Safety Report 18872753 (Version 8)
Quarter: 2021Q3

REPORT INFORMATION
  Report Type: Report from Study
  Country: US (occurrence: US)
  Receive Date: 20210210
  Receipt Date: 20210922
  Transmission Date: 20211014
  Serious: Yes (Hospitalization)
  Sender: FDA-Public Use
  Company Number: NVSC2021US024447

PATIENT
  Age: 88 Year
  Sex: Female

DRUGS (1)
  1. ENTRESTO [Suspect]
     Active Substance: SACUBITRIL\VALSARTAN
     Indication: CARDIAC FAILURE CHRONIC
     Dosage: 1 DF, BID (24/26 MG)
     Route: 048
     Dates: start: 202012

REACTIONS (25)
  - Nervousness [Unknown]
  - Headache [Recovering/Resolving]
  - Inappropriate schedule of product administration [Unknown]
  - Product dose omission issue [Not Recovered/Not Resolved]
  - Asthenia [Unknown]
  - Hypotension [Unknown]
  - Contusion [Recovering/Resolving]
  - Hypertension [Recovering/Resolving]
  - Pain in extremity [Unknown]
  - Abdominal pain upper [Unknown]
  - Flatulence [Unknown]
  - Dizziness [Recovering/Resolving]
  - Fall [Recovering/Resolving]
  - Peripheral swelling [Recovering/Resolving]
  - Confusional state [Unknown]
  - Illness [Unknown]
  - Dyspepsia [Unknown]
  - Decreased appetite [Unknown]
  - Atrial fibrillation [Recovering/Resolving]
  - Sleep disorder [Unknown]
  - Dyspnoea [Not Recovered/Not Resolved]
  - Memory impairment [Recovering/Resolving]
  - Therapeutic response unexpected [Recovering/Resolving]
  - Injury [Recovering/Resolving]
  - Feeling abnormal [Recovering/Resolving]

NARRATIVE: CASE EVENT DATE: 202107
